FAERS Safety Report 4772827-8 (Version None)
Quarter: 2005Q3

REPORT INFORMATION
  Report Type: 
  Country: None (occurrence: None)
  Receive Date: 20050916
  Receipt Date: 20050906
  Transmission Date: 20060218
  Serious: Yes (Death)
  Sender: FDA-Public Use
  Company Number: 2005125300

PATIENT
  Age: 55 Year
  Sex: Male
  Weight: 30 kg

DRUGS (1)
  1. VFEND [Suspect]
     Indication: ASPERGILLOMA
     Dosage: 200 MG (100 MG, BID INTERVAL: EVERY DAY), ORAL
     Route: 048
     Dates: start: 20050819, end: 20050901

REACTIONS (2)
  - CONDITION AGGRAVATED [None]
  - PULMONARY FIBROSIS [None]
